FAERS Safety Report 4648746-4 (Version None)
Quarter: 2005Q2

REPORT INFORMATION
  Report Type: 
  Country: None (occurrence: None)
  Receive Date: 20050427
  Receipt Date: 20050412
  Transmission Date: 20051028
  Serious: Yes (Death, Hospitalization)
  Sender: FDA-Public Use
  Company Number: USA050291685

PATIENT
  Age: 80 Year
  Sex: Male
  Weight: 73 kg

DRUGS (5)
  1. ALIMTA [Suspect]
     Indication: LUNG CARCINOMA CELL TYPE UNSPECIFIED RECURRENT
     Dosage: 960 MG
     Dates: start: 20041129
  2. VITAMIN B-12 [Concomitant]
  3. FOLIC ACID [Concomitant]
  4. CORTICOSTEROID NOS [Concomitant]
  5. DIGOXIN [Concomitant]

REACTIONS (8)
  - ABNORMAL BEHAVIOUR [None]
  - CEREBRAL ATROPHY [None]
  - CONFUSIONAL STATE [None]
  - DEMENTIA [None]
  - ENCEPHALOPATHY [None]
  - HYPONATRAEMIA [None]
  - LETHARGY [None]
  - RESPIRATORY FAILURE [None]
